FAERS Safety Report 18355323 (Version 1)
Quarter: 2020Q4

REPORT INFORMATION
  Report Type: Spontaneous
  Country: US (occurrence: US)
  Receive Date: 20201006
  Receipt Date: 20201006
  Transmission Date: 20210114
  Serious: No
  Sender: FDA-Public Use
  Company Number: None

PATIENT
  Sex: Female

DRUGS (1)
  1. OCTREOTIDE 1ML ML SDV [Suspect]
     Active Substance: OCTREOTIDE ACETATE
     Indication: COLITIS ULCERATIVE
     Route: 058
     Dates: start: 202008

REACTIONS (3)
  - Diarrhoea [None]
  - Drug ineffective [None]
  - Product quality issue [None]
